FAERS Safety Report 5310662-2 (Version None)
Quarter: 2007Q2

REPORT INFORMATION
  Report Type: 
  Country: None (occurrence: None)
  Receive Date: 20070428
  Receipt Date: 20070417
  Transmission Date: 20071010
  Serious: Yes (Death, Life-Threatening, Other)
  Sender: FDA-Public Use
  Company Number: GB-PFIZER INC-2007031395

PATIENT
  Age: 47 Year
  Sex: Male

DRUGS (5)
  1. EPLERENONE [Suspect]
     Indication: CARDIAC FAILURE
     Route: 048
  2. AMIODARONE HCL [Concomitant]
     Dosage: DAILY DOSE:200MG
     Route: 048
  3. FUROSEMIDE [Concomitant]
     Dosage: DAILY DOSE:50MG
  4. LEVOTHYROXINE SODIUM [Concomitant]
     Dosage: DAILY DOSE:50MG
     Route: 048
  5. METOCLOPRAMIDE [Concomitant]

REACTIONS (1)
  - GASTROENTERITIS [None]
